FAERS Safety Report 5692319-1 (Version None)
Quarter: 2008Q1

REPORT INFORMATION
  Report Type: 
  Country: None (occurrence: None)
  Receive Date: 20080331
  Receipt Date: 20080219
  Transmission Date: 20080703
  Serious: Yes (Other)
  Sender: FDA-Public Use
  Company Number: 062-20785-08031583

PATIENT
  Age: 66 Year
  Sex: Male

DRUGS (6)
  1. THALIDOMIDE [Suspect]
     Indication: PLASMACYTOMA
     Dosage: 200 MG, DAILY, ORAL
     Route: 048
     Dates: start: 20040101, end: 20070101
  2. REVLIMID [Suspect]
     Indication: DRUG USE FOR UNKNOWN INDICATION
     Dosage: ORAL
     Route: 048
     Dates: start: 20070101
  3. FOLIC ACID [Concomitant]
  4. LEVOTHYROXINE SODIUM [Concomitant]
  5. MARCUMAR [Concomitant]
  6. ZOMETA [Concomitant]

REACTIONS (1)
  - PARKINSON'S DISEASE [None]
